FAERS Safety Report 9497067 (Version 1)
Quarter: 2013Q3

REPORT INFORMATION
  Report Type: Spontaneous
  Country: US (occurrence: None)
  Receive Date: 20130903
  Receipt Date: 20130903
  Transmission Date: 20140515
  Serious: Yes (Other)
  Sender: FDA-Public Use
  Company Number: None

PATIENT
  Age: 38 Year
  Sex: Male
  Weight: 83.92 kg

DRUGS (2)
  1. SAPHRIS [Suspect]
     Indication: SCHIZOPHRENIA
  2. SAPHRIS [Suspect]
     Indication: HALLUCINATION, AUDITORY

REACTIONS (8)
  - Dysphagia [None]
  - Poisoning [None]
  - Memory impairment [None]
  - Speech disorder [None]
  - Movement disorder [None]
  - Gait disturbance [None]
  - Loss of consciousness [None]
  - Hallucination, auditory [None]
